FAERS Safety Report 26196906 (Version 1)
Quarter: 2025Q4

REPORT INFORMATION
  Report Type: Spontaneous
  Country: US (occurrence: US)
  Receive Date: 20251224
  Receipt Date: 20251224
  Transmission Date: 20260117
  Serious: Yes (Hospitalization)
  Sender: SCPHARMACEUTICALS
  Company Number: US-SCPHARMACEUTICALS-2025-SCPH-US000838

PATIENT

DRUGS (1)
  1. FUROSCIX [Suspect]
     Active Substance: FUROSEMIDE
     Indication: Oedema peripheral
     Dosage: UNK
     Route: 058
     Dates: start: 20251207, end: 20251207

REACTIONS (2)
  - Infusion site haemorrhage [Recovering/Resolving]
  - Arterial injury [Recovering/Resolving]

NARRATIVE: CASE EVENT DATE: 20251207
